FAERS Safety Report 10069796 (Version 1)
Quarter: 2014Q2

REPORT INFORMATION
  Report Type: Spontaneous
  Country: US (occurrence: None)
  Receive Date: 20140409
  Receipt Date: 20140409
  Transmission Date: 20141212
  Serious: Yes (Other)
  Sender: FDA-Public Use
  Company Number: None

PATIENT
  Age: 27 Year
  Sex: Female
  Weight: 48.54 kg

DRUGS (1)
  1. HUMIRA 40MG ABBVIE [Suspect]
     Indication: COLITIS ULCERATIVE
     Dosage: 1 PEN OF 40MG/WEEK ONCE PER WEEK GIVEN INTO/UNDER THE SKIN
     Route: 058

REACTIONS (2)
  - Fatigue [None]
  - Impetigo [None]
